FAERS Safety Report 9128131 (Version 2)
Quarter: 2013Q2

REPORT INFORMATION
  Report Type: Spontaneous
  Country: FR (occurrence: FR)
  Receive Date: 20130228
  Receipt Date: 20130426
  Transmission Date: 20140414
  Serious: Yes (Other)
  Sender: FDA-Public Use
  Company Number: FR-009507513-1302FRA009840

PATIENT
  Age: 57 Year
  Sex: Male

DRUGS (15)
  1. ISENTRESS [Suspect]
     Indication: PRODUCT USED FOR UNKNOWN INDICATION
     Dosage: 400 MG, UNK
     Route: 048
     Dates: start: 20091029
  2. VIREAD [Suspect]
     Indication: HIV INFECTION
     Dosage: UNK
     Route: 048
     Dates: start: 20091028
  3. INTELENCE [Concomitant]
     Indication: PRODUCT USED FOR UNKNOWN INDICATION
     Dosage: UNK
     Dates: start: 20120620
  4. GLUCOPHAGE [Concomitant]
     Indication: PRODUCT USED FOR UNKNOWN INDICATION
     Dosage: UNK
  5. MODAMIDE [Concomitant]
     Indication: PRODUCT USED FOR UNKNOWN INDICATION
     Dosage: UNK
  6. CRESTOR [Concomitant]
     Indication: PRODUCT USED FOR UNKNOWN INDICATION
     Dosage: UNK
     Dates: start: 20111013
  7. VASTAREL [Concomitant]
     Indication: PRODUCT USED FOR UNKNOWN INDICATION
  8. TENORDATE [Concomitant]
     Indication: PRODUCT USED FOR UNKNOWN INDICATION
  9. ANDRACTIM [Concomitant]
     Indication: PRODUCT USED FOR UNKNOWN INDICATION
  10. ACTOS [Concomitant]
     Indication: PRODUCT USED FOR UNKNOWN INDICATION
     Dosage: UNK
     Dates: end: 20110519
  11. VITAMIN D (UNSPECIFIED) [Concomitant]
     Indication: PRODUCT USED FOR UNKNOWN INDICATION
  12. UVEDOSE [Concomitant]
     Indication: PRODUCT USED FOR UNKNOWN INDICATION
  13. TITANOREINE (CARRAGEENAN (+) LIDOCAINE (+) TITANIUM DIOXIDE (+) ZINC O [Concomitant]
     Indication: PRODUCT USED FOR UNKNOWN INDICATION
  14. ELISOR [Concomitant]
     Indication: PRODUCT USED FOR UNKNOWN INDICATION
     Dosage: UNK
     Dates: start: 20090304
  15. HYPERIUM [Concomitant]
     Indication: BLOOD PRESSURE
     Dosage: UNK
     Dates: end: 20080730

REACTIONS (10)
  - Suicidal ideation [Recovered/Resolved]
  - Drug interaction [Recovered/Resolved]
  - Nightmare [Recovered/Resolved]
  - Abnormal dreams [Recovered/Resolved]
  - Weight decreased [Unknown]
  - Hot flush [Unknown]
  - Osteopenia [Unknown]
  - Gynaecomastia [Unknown]
  - Diabetes mellitus [Recovering/Resolving]
  - Tendonitis [Unknown]
